FAERS Safety Report 20702974 (Version 2)
Quarter: 2022Q2

REPORT INFORMATION
  Report Type: Spontaneous
  Country: PR (occurrence: PR)
  Receive Date: 20220413
  Receipt Date: 20220426
  Transmission Date: 20220721
  Serious: No
  Sender: FDA-Public Use
  Company Number: PR-JNJFOC-20220420646

PATIENT
  Sex: Male

DRUGS (1)
  1. ERLEADA [Suspect]
     Active Substance: APALUTAMIDE
     Indication: Product used for unknown indication
     Route: 048

REACTIONS (3)
  - Prostatic specific antigen decreased [Unknown]
  - Haemoglobin decreased [Unknown]
  - Prostatic specific antigen increased [Unknown]
